FAERS Safety Report 25286266 (Version 1)
Quarter: 2025Q2

REPORT INFORMATION
  Report Type: Spontaneous
  Country: US (occurrence: US)
  Receive Date: 20250509
  Receipt Date: 20250509
  Transmission Date: 20250716
  Serious: Yes (Other)
  Sender: ABBVIE
  Company Number: US-ABBVIE-6264289

PATIENT
  Age: 69 Year
  Sex: Female

DRUGS (1)
  1. SYNTHROID [Suspect]
     Active Substance: LEVOTHYROXINE SODIUM
     Indication: Product used for unknown indication
     Route: 048
     Dates: start: 19951117

REACTIONS (7)
  - Medical procedure [Unknown]
  - Nausea [Unknown]
  - Feeling abnormal [Unknown]
  - Pyrexia [Unknown]
  - Fatigue [Unknown]
  - Splint application [Unknown]
  - Dysphonia [Unknown]

NARRATIVE: CASE EVENT DATE: 20250101
